FAERS Safety Report 4989903-7 (Version None)
Quarter: 2006Q2

REPORT INFORMATION
  Report Type: 
  Country: None (occurrence: None)
  Receive Date: 20060503
  Receipt Date: 20051128
  Transmission Date: 20061013
  Serious: Yes (Hospitalization)
  Sender: FDA-Public Use
  Company Number: AU-BRISTOL-MYERS SQUIBB COMPANY-13232533

PATIENT
  Age: 39 Year
  Sex: Male

DRUGS (9)
  1. CARBOPLATIN [Suspect]
     Dates: start: 20040325
  2. MESNA [Suspect]
     Route: 042
     Dates: start: 20040324, end: 20040326
  3. MESNA [Suspect]
     Route: 048
     Dates: start: 20040324, end: 20040326
  4. MESNA [Suspect]
     Route: 048
     Dates: start: 20040324, end: 20040326
  5. HOLOXAN [Suspect]
     Route: 042
     Dates: start: 20040324, end: 20040326
  6. ETOPOPHOS [Suspect]
     Route: 042
     Dates: start: 20040324, end: 20040326
  7. ATIVAN [Suspect]
     Dates: start: 20040325
  8. COLOXYL + SENNA [Suspect]
     Route: 048
     Dates: start: 20040325
  9. CODALGIN FORTE [Suspect]
     Route: 048
     Dates: start: 20040325

REACTIONS (2)
  - CYSTITIS HAEMORRHAGIC [None]
  - HAEMATURIA [None]
